FAERS Safety Report 21693892 (Version 2)
Quarter: 2022Q4

REPORT INFORMATION
  Report Type: Spontaneous
  Country: CN (occurrence: CN)
  Receive Date: 20221207
  Receipt Date: 20221212
  Transmission Date: 20230113
  Serious: Yes (Death, Life-Threatening, Other)
  Sender: FDA-Public Use
  Company Number: CN-009507513-2212CHN001823

PATIENT
  Age: 65 Year
  Sex: Male

DRUGS (2)
  1. KEYTRUDA [Suspect]
     Active Substance: PEMBROLIZUMAB
     Indication: Lung neoplasm malignant
     Dosage: THE FIRST DOSE
     Dates: start: 20221130, end: 20221130
  2. PACLITAXEL [Concomitant]
     Active Substance: PACLITAXEL
     Dosage: UNK

REACTIONS (10)
  - Gastrointestinal haemorrhage [Fatal]
  - Shock [Fatal]
  - Syncope [Unknown]
  - Gastrointestinal stromal tumour [Unknown]
  - Tumour haemorrhage [Unknown]
  - Troponin abnormal [Unknown]
  - Blood creatine phosphokinase MB abnormal [Unknown]
  - Laboratory test abnormal [Unknown]
  - N-terminal prohormone brain natriuretic peptide abnormal [Unknown]
  - Product use issue [Unknown]

NARRATIVE: CASE EVENT DATE: 20220101
